FAERS Safety Report 21677863 (Version 2)
Quarter: 2024Q1

REPORT INFORMATION
  Report Type: Spontaneous
  Country: FR (occurrence: FR)
  Receive Date: 20221203
  Receipt Date: 20240320
  Transmission Date: 20240410
  Serious: Yes (Other)
  Sender: FDA-Public Use
  Company Number: None

PATIENT
  Age: 54 Year
  Sex: Male

DRUGS (21)
  1. ALLOPURINOL [Suspect]
     Active Substance: ALLOPURINOL
     Indication: Gouty arthritis
     Dosage: LONG-TERM TREATMENT
     Route: 048
  2. MAGNE B6 [Suspect]
     Active Substance: MAGNESIUM\PYRIDOXINE
     Indication: Mineral supplementation
     Dosage: 1 TAB X 2 PER DAY - LONG-TERM TREATMENT
     Route: 048
  3. NEORAL [Suspect]
     Active Substance: CYCLOSPORINE
     Indication: Prophylaxis against transplant rejection
     Dosage: 90 MG IN THE MORNING AND 75 MG IN THE EVENING - LONG-TERM TREATMENT
     Route: 048
  4. FILGRASTIM [Suspect]
     Active Substance: FILGRASTIM
     Indication: Transitional cell carcinoma
     Dosage: 90 MG IN THE MORNING AND 75 MG IN THE EVENING - LONG-TERM TREATMENT, ZARZIO 48 MU/0.5 ML, INFUSIO...
     Route: 065
  5. ATOVAQUONE [Concomitant]
     Active Substance: ATOVAQUONE
     Indication: Product used for unknown indication
     Route: 065
  6. COMIRNATY (TOZINAMERAN) [Suspect]
     Active Substance: TOZINAMERAN
     Indication: COVID-19 immunisation
     Dosage: DISPERSION TO BE DILUTED FOR INJECTION. COVID-19 MRNA VACCINE (MODIFIED NUCLEOSIDE), 1 DF
     Route: 065
     Dates: start: 202104, end: 202104
  7. PANTOPRAZOLE [Suspect]
     Active Substance: PANTOPRAZOLE
     Indication: Product used for unknown indication
     Dosage: LONG-TERM TREATMENT
     Route: 048
  8. MIRCERA [Concomitant]
     Active Substance: METHOXY POLYETHYLENE GLYCOL-EPOETIN BETA
     Indication: Product used for unknown indication
     Dosage: 75MG IN A MONTH
     Route: 065
  9. VALGANCICLOVIR HYDROCHLORIDE [Suspect]
     Active Substance: VALGANCICLOVIR HYDROCHLORIDE
     Indication: Prophylaxis
     Dosage: 450 MG, LONG-TERM TREATMENT
     Route: 065
  10. HIZENTRA [Concomitant]
     Active Substance: HUMAN IMMUNOGLOBULIN G
     Indication: Product used for unknown indication
     Dosage: 7 GRAM IN 14 DAY
     Route: 065
  11. EVUSHELD [Concomitant]
     Active Substance: CILGAVIMAB\TIXAGEVIMAB
     Indication: COVID-19
     Route: 065
     Dates: start: 20220530, end: 20220530
  12. MITOMYCIN [Suspect]
     Active Substance: MITOMYCIN
     Indication: Transitional cell carcinoma
     Route: 043
     Dates: start: 202203, end: 202206
  13. PREDNISONE [Concomitant]
     Active Substance: PREDNISONE
     Indication: Product used for unknown indication
     Route: 065
  14. INNOHEP [Concomitant]
     Active Substance: TINZAPARIN SODIUM
     Indication: Product used for unknown indication
     Route: 065
  15. CALCIUM CARBONATE [Concomitant]
     Active Substance: CALCIUM CARBONATE
     Indication: Product used for unknown indication
     Route: 065
  16. IRBESARTAN [Concomitant]
     Active Substance: IRBESARTAN
     Indication: Product used for unknown indication
     Dosage: IN THE MORNING
     Route: 065
  17. CERTICAN [Concomitant]
     Active Substance: EVEROLIMUS
     Indication: Product used for unknown indication
     Dosage: 0.75 MG MORNING AND 0.75 MG EVENING TARGET (5-7 NG/ML)
     Route: 065
  18. MIANSERIN [Concomitant]
     Active Substance: MIANSERIN
     Indication: Product used for unknown indication
     Dosage: 1 IN THE EVENING
     Route: 065
  19. INFLUENZA VIRUS VACCINE [Concomitant]
     Active Substance: INFLUENZA VIRUS VACCINE
     Indication: Product used for unknown indication
     Route: 065
     Dates: start: 2021
  20. THIAMINE HYDROCHLORIDE [Concomitant]
     Active Substance: THIAMINE HYDROCHLORIDE
     Indication: Product used for unknown indication
     Dosage: 1 IN THE MORNING
     Route: 065
  21. LOPERAMIDE [Concomitant]
     Active Substance: LOPERAMIDE
     Indication: Product used for unknown indication
     Dosage: 1 MORNING, NOON AND EVENING AND THEN AT EACH
     Route: 065

REACTIONS (1)
  - Neuropathy peripheral [Recovering/Resolving]

NARRATIVE: CASE EVENT DATE: 20220401
